FAERS Safety Report 13670436 (Version 1)
Quarter: 2017Q2

REPORT INFORMATION
  Report Type: Spontaneous
  Country: US (occurrence: US)
  Receive Date: 20170620
  Receipt Date: 20170620
  Transmission Date: 20170830
  Serious: No
  Sender: FDA-Public Use
  Company Number: US-SHIRE-US201712980

PATIENT
  Sex: Female

DRUGS (1)
  1. XIIDRA [Suspect]
     Active Substance: LIFITEGRAST
     Indication: PRODUCT USED FOR UNKNOWN INDICATION
     Dosage: 1 GTT, OU, 2X/DAY:BID
     Route: 047
     Dates: start: 201704

REACTIONS (8)
  - Unevaluable event [Unknown]
  - Drug dose omission [Unknown]
  - Madarosis [Unknown]
  - Corneal abrasion [Unknown]
  - Instillation site irritation [Unknown]
  - Drug hypersensitivity [Unknown]
  - Dysgeusia [Recovered/Resolved]
  - Growth of eyelashes [Unknown]
